FAERS Safety Report 11414067 (Version 1)
Quarter: 2015Q3

REPORT INFORMATION
  Report Type: Spontaneous
  Country: DE (occurrence: DE)
  Receive Date: 20150824
  Receipt Date: 20150824
  Transmission Date: 20151125
  Serious: Yes (Hospitalization, Other)
  Sender: FDA-Public Use
  Company Number: DE-OTSUKA-2015_007879

PATIENT

DRUGS (1)
  1. ABILIFY MAINTENA [Suspect]
     Active Substance: ARIPIPRAZOLE
     Indication: SCHIZOPHRENIA
     Dosage: UNK, EVERY 4 WEEKS
     Route: 030

REACTIONS (7)
  - Neuroleptic malignant syndrome [Unknown]
  - Altered state of consciousness [Unknown]
  - Pyrexia [Unknown]
  - General physical health deterioration [Unknown]
  - Treatment noncompliance [Unknown]
  - Parkinson^s disease [Unknown]
  - Fluid intake reduced [Unknown]
